FAERS Safety Report 7061917-5 (Version None)
Quarter: 2010Q4

REPORT INFORMATION
  Report Type: 
  Country: None (occurrence: None)
  Receive Date: 20101026
  Receipt Date: 20101015
  Transmission Date: 20110411
  Serious: Yes (Other)
  Sender: FDA-Public Use
  Company Number: US-JNJFOC-20100808832

PATIENT
  Sex: Male

DRUGS (12)
  1. REMICADE [Suspect]
     Indication: ANKYLOSING SPONDYLITIS
     Route: 042
  2. AMITRIPTYLINE HCL [Concomitant]
     Indication: INSOMNIA
     Route: 048
  3. PLAVIX [Concomitant]
     Indication: STENT PLACEMENT
  4. DILTIAZEM [Concomitant]
     Indication: HYPERTENSION
  5. CLONIDINE [Concomitant]
     Indication: HYPERTENSION
  6. LIPITOR [Concomitant]
     Indication: HYPERCHOLESTEROLAEMIA
  7. ZETIA [Concomitant]
     Indication: HYPERCHOLESTEROLAEMIA
  8. METOPROLOL [Concomitant]
     Indication: HYPERTENSION
  9. ALLOPURINOL [Concomitant]
     Indication: BLOOD URIC ACID ABNORMAL
  10. ZYRTEC [Concomitant]
     Indication: MULTIPLE ALLERGIES
  11. HYDROCHLOROTHIAZIDE [Concomitant]
     Indication: HYPERTENSION
  12. DIOVAN [Concomitant]
     Indication: HYPERTENSION

REACTIONS (1)
  - HALLUCINATION, VISUAL [None]
